FAERS Safety Report 9837449 (Version 1)
Quarter: 2014Q1

REPORT INFORMATION
  Report Type: Spontaneous
  Country: US (occurrence: US)
  Receive Date: 20140123
  Receipt Date: 20140123
  Transmission Date: 20141002
  Serious: Yes (Hospitalization, Other)
  Sender: FDA-Public Use
  Company Number: US-BAYER-2014-009613

PATIENT
  Age: 34 Year
  Sex: Female

DRUGS (10)
  1. YAZ [Suspect]
  2. YASMIN [Suspect]
  3. HYDROCODONE W/APAP [Concomitant]
     Dosage: 7.5/750 MG
     Dates: start: 20050922, end: 20051223
  4. ALPRAZOLAM [Concomitant]
     Dosage: 0.5 MG, UNK
     Dates: start: 20050922, end: 20051004
  5. BACLOFEN [Concomitant]
     Dosage: 10 MG, UNK
     Dates: start: 20051128
  6. CORTISONE [Concomitant]
  7. XANAX [Concomitant]
  8. VICODIN [Concomitant]
  9. LEXAPRO [Concomitant]
  10. PROZAC [Concomitant]

REACTIONS (3)
  - Deep vein thrombosis [None]
  - Thrombophlebitis superficial [None]
  - Thrombophlebitis superficial [None]
